FAERS Safety Report 7368407-0 (Version None)
Quarter: 2011Q1

REPORT INFORMATION
  Report Type: 
  Country: None (occurrence: None)
  Receive Date: 20110323
  Receipt Date: 20110317
  Transmission Date: 20110831
  Serious: Yes (Death, Other)
  Sender: FDA-Public Use
  Company Number: US-AMGEN-USASP2011015014

PATIENT
  Sex: Male

DRUGS (3)
  1. NPLATE [Suspect]
     Indication: IDIOPATHIC THROMBOCYTOPENIC PURPURA
     Dates: start: 20100930
  2. CORTICOSTEROIDS [Concomitant]
  3. GLEEVEC [Concomitant]

REACTIONS (3)
  - MYELODYSPLASTIC SYNDROME [None]
  - BRAIN NEOPLASM [None]
  - PNEUMONIA [None]
